FAERS Safety Report 5851781-1 (Version None)
Quarter: 2008Q3

REPORT INFORMATION
  Report Type: 
  Country: None (occurrence: None)
  Receive Date: 20080820
  Receipt Date: 20080813
  Transmission Date: 20090109
  Serious: Yes (Other)
  Sender: FDA-Public Use
  Company Number: PT-JNJCH-2008021381

PATIENT
  Age: 45 Year
  Sex: Female

DRUGS (1)
  1. ZYRTEC [Suspect]
     Indication: RHINITIS ALLERGIC
     Dosage: TEXT:10 MG
     Route: 048

REACTIONS (2)
  - DRUG ERUPTION [None]
  - SKIN HYPERPIGMENTATION [None]
